FAERS Safety Report 25747544 (Version 1)
Quarter: 2025Q3

REPORT INFORMATION
  Report Type: Spontaneous
  Country: US (occurrence: US)
  Receive Date: 20250901
  Receipt Date: 20250901
  Transmission Date: 20251021
  Serious: No
  Sender: JOHNSON AND JOHNSON
  Company Number: US-JNJFOC-20250830678

PATIENT

DRUGS (1)
  1. ERLEADA [Suspect]
     Active Substance: APALUTAMIDE
     Indication: Product used for unknown indication

REACTIONS (6)
  - Recall phenomenon [Recovering/Resolving]
  - Taste disorder [Recovering/Resolving]
  - Head discomfort [Recovering/Resolving]
  - Primary stabbing headache [Recovering/Resolving]
  - Hot flush [Recovering/Resolving]
  - Cold flash [Recovering/Resolving]
